FAERS Safety Report 7963798-1 (Version None)
Quarter: 2011Q4

REPORT INFORMATION
  Report Type: 
  Country: None (occurrence: None)
  Receive Date: 20111208
  Receipt Date: 20111128
  Transmission Date: 20120403
  Serious: Yes (Other)
  Sender: FDA-Public Use
  Company Number: US-BAYER-2011-113977

PATIENT
  Age: 27 Year
  Sex: Female
  Weight: 53.968 kg

DRUGS (3)
  1. PRISTINAMYCIN [Concomitant]
     Route: 048
  2. MIRENA [Suspect]
     Indication: CONTRACEPTION
     Dosage: UNK
     Dates: start: 20100301, end: 20110907
  3. PHENTERMINE [Concomitant]
     Route: 048

REACTIONS (2)
  - DEVICE DIFFICULT TO USE [None]
  - UTERINE HAEMORRHAGE [None]
